FAERS Safety Report 4624420-5 (Version None)
Quarter: 2005Q1

REPORT INFORMATION
  Report Type: 
  Country: None (occurrence: None)
  Receive Date: 20050330
  Receipt Date: 20050330
  Transmission Date: 20050727
  Serious: No
  Sender: FDA-Public Use
  Company Number: None

PATIENT

DRUGS (1)
  1. PEG-INTRON [Suspect]

REACTIONS (4)
  - ABASIA [None]
  - FATIGUE [None]
  - HEADACHE [None]
  - PAIN [None]
